FAERS Safety Report 24377104 (Version 1)
Quarter: 2024Q3

REPORT INFORMATION
  Report Type: Spontaneous
  Country: US (occurrence: None)
  Receive Date: 20240927
  Receipt Date: 20240927
  Transmission Date: 20241017
  Serious: Yes (Hospitalization)
  Sender: Public
  Company Number: None

PATIENT
  Age: 94 Year
  Sex: Male
  Weight: 66 kg

DRUGS (2)
  1. HYDROCHLOROTHIAZIDE\LOSARTAN POTASSIUM [Suspect]
     Active Substance: HYDROCHLOROTHIAZIDE\LOSARTAN POTASSIUM
     Indication: Hypertension
     Dosage: 1.00 UNK-UNKNOWN DAILY ORAL ?
     Route: 048
  2. SPIRONOLACTONE [Suspect]
     Active Substance: SPIRONOLACTONE
     Indication: Hypertension
     Dosage: DAILY ORAL
     Route: 048

REACTIONS (5)
  - Hypotension [None]
  - Orthostatic hypotension [None]
  - Acute kidney injury [None]
  - Dizziness postural [None]
  - Dehydration [None]

NARRATIVE: CASE EVENT DATE: 20231205
